FAERS Safety Report 9921374 (Version 2)
Quarter: 2014Q1

REPORT INFORMATION
  Report Type: Report from Study
  Country: CA (occurrence: CA)
  Receive Date: 20140225
  Receipt Date: 20140312
  Transmission Date: 20141002
  Serious: Yes (Hospitalization, Other)
  Sender: FDA-Public Use
  Company Number: CA-JNJFOC-20140212642

PATIENT
  Age: 64 Year
  Sex: Female

DRUGS (6)
  1. SIMPONI [Suspect]
     Indication: RHEUMATOID ARTHRITIS
     Dosage: START DATE : 04-JUL-YEAR UNSPECIFIED (CONFLICTINGLY REPORTED AS 04-JUL-2014)
     Route: 058
     Dates: start: 20130704
  2. METHOTREXATE [Concomitant]
     Route: 048
     Dates: start: 20110218
  3. DIOVAN [Concomitant]
     Route: 048
  4. AMLODIPINE [Concomitant]
     Route: 048
     Dates: start: 20140206
  5. VENTOLIN [Concomitant]
     Route: 065
  6. ADVAIR [Concomitant]
     Dosage: BID PRN
     Route: 065

REACTIONS (3)
  - Hypothyroidism [Unknown]
  - Asthenia [Unknown]
  - Dizziness [Unknown]
